FAERS Safety Report 17023562 (Version 1)
Quarter: 2019Q4

REPORT INFORMATION
  Report Type: Other
  Country: GB (occurrence: GB)
  Receive Date: 20191112
  Receipt Date: 20191112
  Transmission Date: 20200122
  Serious: Yes (Other)
  Sender: FDA-Public Use
  Company Number: GB-LUPIN PHARMACEUTICALS INC.-2019-07414

PATIENT
  Age: 31 Year
  Sex: Male
  Weight: 106 kg

DRUGS (7)
  1. QVAR [Concomitant]
     Active Substance: BECLOMETHASONE DIPROPIONATE
     Indication: PRODUCT USED FOR UNKNOWN INDICATION
     Dosage: 4 DOSAGE FORM, QD
     Route: 055
     Dates: start: 20190109
  2. FLUOXETINE [Concomitant]
     Active Substance: FLUOXETINE HYDROCHLORIDE
     Indication: DEPRESSION
     Dosage: 1 DOSAGE FORM, QD (IN THE MORNING)
     Route: 065
     Dates: start: 20191018
  3. SERTRALINE HYDROCHLORIDE TABLETS [Suspect]
     Active Substance: SERTRALINE HYDROCHLORIDE
     Indication: DEPRESSION
     Dosage: 01 DOSAGE FORM, QD (IN THE MORNING)
     Route: 065
     Dates: start: 20191004
  4. FOLIC ACID. [Concomitant]
     Active Substance: FOLIC ACID
     Indication: PRODUCT USED FOR UNKNOWN INDICATION
     Dosage: 1 DOSAGE FORM, QD
     Route: 065
     Dates: start: 20191001
  5. SALAMOL [SALBUTAMOL] [Concomitant]
     Indication: PRODUCT USED FOR UNKNOWN INDICATION
     Dosage: UNK, PRN (ONE TO TWO DOSES AS NEEDED)
     Route: 055
     Dates: start: 20190109
  6. SERTRALINE HYDROCHLORIDE TABLETS [Suspect]
     Active Substance: SERTRALINE HYDROCHLORIDE
     Dosage: 50 MILLIGRAM, UNK
     Route: 065
     Dates: start: 20191018
  7. DIAZEPAM. [Concomitant]
     Active Substance: DIAZEPAM
     Indication: PRODUCT USED FOR UNKNOWN INDICATION
     Dosage: 1 DOSAGE FORM, PRN (TO BE TAKEN ONLY WHEN NEEDED, UPTO 3)
     Route: 065
     Dates: start: 20190918, end: 20190925

REACTIONS (2)
  - Urinary retention [Recovering/Resolving]
  - Dysuria [Unknown]

NARRATIVE: CASE EVENT DATE: 20191018
